FAERS Safety Report 15557240 (Version 7)
Quarter: 2020Q2

REPORT INFORMATION
  Report Type: Spontaneous
  Country: US (occurrence: US)
  Receive Date: 20181026
  Receipt Date: 20200519
  Transmission Date: 20200713
  Serious: Yes (Hospitalization, Other)
  Sender: FDA-Public Use
  Company Number: US-ACTELION-A-NJ2018-180550

PATIENT
  Age: 60 Year
  Sex: Male
  Weight: 78.01 kg

DRUGS (7)
  1. REMODULIN [Suspect]
     Active Substance: TREPROSTINIL
     Dosage: 66 NG/KG, PER MIN
     Route: 042
  2. TREPROSTINIL. [Concomitant]
     Active Substance: TREPROSTINIL
  3. OPSUMIT [Suspect]
     Active Substance: MACITENTAN
     Indication: PULMONARY HYPERTENSION
     Dosage: 10 MG, QD
     Route: 048
     Dates: start: 20160712
  4. REMODULIN [Suspect]
     Active Substance: TREPROSTINIL
     Indication: PRODUCT USED FOR UNKNOWN INDICATION
     Route: 042
  5. OXYGEN. [Concomitant]
     Active Substance: OXYGEN
  6. REMODULIN [Suspect]
     Active Substance: TREPROSTINIL
     Dosage: 70 NG/KG, PER MIN
     Route: 042
  7. SILDENAFIL CITRATE. [Concomitant]
     Active Substance: SILDENAFIL CITRATE

REACTIONS (9)
  - Seizure [Recovering/Resolving]
  - Fatigue [Unknown]
  - Catheter site haemorrhage [Recovered/Resolved]
  - Sluggishness [Unknown]
  - Loss of consciousness [Unknown]
  - Air embolism [Recovering/Resolving]
  - Lung transplant [Recovering/Resolving]
  - Device issue [Unknown]
  - Cerebrovascular accident [Recovering/Resolving]

NARRATIVE: CASE EVENT DATE: 201810
